FAERS Safety Report 11896755 (Version 1)
Quarter: 2016Q1

REPORT INFORMATION
  Report Type: Spontaneous
  Country: US (occurrence: US)
  Receive Date: 20160107
  Receipt Date: 20160107
  Transmission Date: 20160526
  Serious: No
  Sender: FDA-Public Use
  Company Number: US-ACTELION PHARMACEUTICALS US, INC.-A-US2016-129607

PATIENT
  Age: 68 Year
  Sex: Female

DRUGS (7)
  1. OPSUMIT [Suspect]
     Active Substance: MACITENTAN
     Indication: PULMONARY ARTERIAL HYPERTENSION
     Dosage: 10 MG, QD
     Route: 048
     Dates: start: 20150709
  2. RANEXA [Concomitant]
     Active Substance: RANOLAZINE
  3. ATORVASTATIN [Concomitant]
     Active Substance: ATORVASTATIN
  4. TORSEMIDE. [Concomitant]
     Active Substance: TORSEMIDE
  5. METOLAZONE. [Concomitant]
     Active Substance: METOLAZONE
  6. NEXIUM [Concomitant]
     Active Substance: ESOMEPRAZOLE MAGNESIUM
  7. LANTUS [Concomitant]
     Active Substance: INSULIN GLARGINE

REACTIONS (1)
  - Herpes zoster [Unknown]
